FAERS Safety Report 11150185 (Version 1)
Quarter: 2015Q2

REPORT INFORMATION
  Report Type: Spontaneous
  Country: IT (occurrence: IT)
  Receive Date: 20150529
  Receipt Date: 20150529
  Transmission Date: 20150821
  Serious: Yes (Other)
  Sender: FDA-Public Use
  Company Number: PHHY2015IT062615

PATIENT
  Age: 19 Year
  Sex: Male
  Weight: 41.5 kg

DRUGS (5)
  1. DEFLAZACORTE [Suspect]
     Active Substance: DEFLAZACORT
     Dosage: 0.90 MG/KG, UNK
     Route: 065
  2. PREDNISONE. [Suspect]
     Active Substance: PREDNISONE
     Indication: DUCHENNE MUSCULAR DYSTROPHY
     Dosage: 0.75 MG/KG, UNK
     Route: 065
  3. DEFLAZACORTE [Suspect]
     Active Substance: DEFLAZACORT
     Dosage: 36 MG, QD
     Route: 065
  4. DEFLAZACORTE [Suspect]
     Active Substance: DEFLAZACORT
     Indication: DUCHENNE MUSCULAR DYSTROPHY
     Dosage: 1.5 MG/KG, FROM 5.5 YEARS OF AGE
     Route: 065
  5. PREDNISONE. [Suspect]
     Active Substance: PREDNISONE
     Dosage: 1.25 MG/KG, UNK
     Route: 065

REACTIONS (2)
  - Growth retardation [Unknown]
  - Delayed puberty [Unknown]
